FAERS Safety Report 9773196 (Version 2)
Quarter: 2013Q4

REPORT INFORMATION
  Report Type: Spontaneous
  Country: CA (occurrence: CA)
  Receive Date: 20131219
  Receipt Date: 20131223
  Transmission Date: 20140711
  Serious: Yes (Other)
  Sender: FDA-Public Use
  Company Number: CA-GLAXOSMITHKLINE-A1007890A

PATIENT
  Age: 47 Year
  Sex: Male

DRUGS (3)
  1. VOTRIENT [Suspect]
     Indication: SARCOMA
     Dosage: 800MG PER DAY
     Route: 048
     Dates: start: 20130107, end: 20131002
  2. EFFEXOR [Concomitant]
  3. STEMETIL [Concomitant]

REACTIONS (7)
  - Tumour pain [Unknown]
  - Muscle tightness [Not Recovered/Not Resolved]
  - Decreased appetite [Unknown]
  - Weight decreased [Unknown]
  - Pallor [Unknown]
  - Hair colour changes [Unknown]
  - Increased tendency to bruise [Unknown]
